FAERS Safety Report 8098055-9 (Version None)
Quarter: 2012Q1

REPORT INFORMATION
  Report Type: 
  Country: None (occurrence: None)
  Receive Date: 20120128
  Receipt Date: 20110822
  Transmission Date: 20120608
  Serious: No
  Sender: FDA-Public Use
  Company Number: US-ABBOTT-11P-163-0842092-00

PATIENT
  Sex: Female
  Weight: 72.64 kg

DRUGS (5)
  1. BENICAR [Concomitant]
     Indication: HYPERTENSION
  2. HYDROCHLOROTHIAZIDE [Concomitant]
     Indication: HYPERTENSION
  3. HUMIRA [Suspect]
     Indication: PSORIASIS
     Route: 058
     Dates: start: 20090901, end: 20110424
  4. LEVOTHYROXINE SODIUM [Concomitant]
     Indication: HYPOTHYROIDISM
  5. SPIRIVA [Concomitant]
     Indication: PRODUCT USED FOR UNKNOWN INDICATION
     Route: 055

REACTIONS (9)
  - INTERVERTEBRAL DISC PROTRUSION [None]
  - SPINAL COLUMN STENOSIS [None]
  - PARAESTHESIA [None]
  - HYPOAESTHESIA [None]
  - INTERVERTEBRAL DISC SPACE NARROWING [None]
  - DIPLOPIA [None]
  - MICROANGIOPATHY [None]
  - INTERVERTEBRAL DISC DEGENERATION [None]
  - DEMYELINATION [None]
